FAERS Safety Report 12770465 (Version 1)
Quarter: 2016Q3

REPORT INFORMATION
  Report Type: Spontaneous
  Country: US (occurrence: US)
  Receive Date: 20160921
  Receipt Date: 20160921
  Transmission Date: 20161109
  Serious: No
  Sender: FDA-Public Use
  Company Number: None

PATIENT
  Age: 70 Year
  Sex: Female
  Weight: 48.15 kg

DRUGS (3)
  1. SULFAMETH/TEMP 800/160MG TB [Suspect]
     Active Substance: SULFAMETHOXAZOLE\TRIMETHOPRIM
     Indication: URINARY TRACT INFECTION
     Route: 048
     Dates: start: 20160918, end: 20160920
  2. MULTI/MINERAL [Concomitant]
  3. VITAMIN C [Concomitant]
     Active Substance: ASCORBIC ACID

REACTIONS (4)
  - Myalgia [None]
  - Product substitution issue [None]
  - Insomnia [None]
  - Pain in extremity [None]

NARRATIVE: CASE EVENT DATE: 20160919
